FAERS Safety Report 7425206-9 (Version None)
Quarter: 2011Q2

REPORT INFORMATION
  Report Type: 
  Country: None (occurrence: None)
  Receive Date: 20110413
  Receipt Date: 20090901
  Transmission Date: 20111010
  Serious: Yes (Hospitalization)
  Sender: FDA-Public Use
  Company Number: 2009SP023472

PATIENT
  Age: 24 Year
  Sex: Female
  Weight: 120.2032 kg

DRUGS (1)
  1. NUVARING [Suspect]
     Indication: CONTRACEPTION
     Dosage: 1 DF
     Dates: start: 20061101, end: 20070915

REACTIONS (17)
  - THROMBOSIS [None]
  - DEEP VEIN THROMBOSIS [None]
  - PREMATURE LABOUR [None]
  - PULMONARY EMBOLISM [None]
  - DEPRESSION [None]
  - DRUG EXPOSURE DURING PREGNANCY [None]
  - MARITAL PROBLEM [None]
  - BLOOD DISORDER [None]
  - COAGULOPATHY [None]
  - DEVICE FAILURE [None]
  - PRODUCT QUALITY ISSUE [None]
  - INJURY [None]
  - UNEVALUABLE EVENT [None]
  - OVARIAN CYST [None]
  - PRODUCT LABEL ISSUE [None]
  - HEADACHE [None]
  - ECONOMIC PROBLEM [None]
